FAERS Safety Report 22117506 (Version 2)
Quarter: 2023Q2

REPORT INFORMATION
  Report Type: Spontaneous
  Country: US (occurrence: US)
  Receive Date: 20230321
  Receipt Date: 20230412
  Transmission Date: 20230722
  Serious: Yes (Other)
  Sender: FDA-Public Use
  Company Number: US-MLMSERVICE-20230302-4138718-2

PATIENT

DRUGS (27)
  1. CYCLOPHOSPHAMIDE [Suspect]
     Active Substance: CYCLOPHOSPHAMIDE
     Indication: Metastases to bone
     Dosage: UNK
     Route: 065
  2. CYCLOPHOSPHAMIDE [Suspect]
     Active Substance: CYCLOPHOSPHAMIDE
     Indication: Neuroblastoma recurrent
     Dosage: UNK
     Route: 065
     Dates: start: 2004, end: 2004
  3. CYCLOPHOSPHAMIDE [Suspect]
     Active Substance: CYCLOPHOSPHAMIDE
     Indication: Neuroblastoma
  4. CARBOPLATIN [Suspect]
     Active Substance: CARBOPLATIN
     Indication: Metastases to bone
     Dosage: UNK
     Route: 065
  5. CARBOPLATIN [Suspect]
     Active Substance: CARBOPLATIN
     Indication: Neuroblastoma
  6. ETOPOSIDE [Suspect]
     Active Substance: ETOPOSIDE
     Indication: Neuroblastoma recurrent
     Dosage: UNK
     Route: 065
  7. ETOPOSIDE [Suspect]
     Active Substance: ETOPOSIDE
     Indication: Metastases to bone
     Dosage: 50 MG/M2/DAY, VP16, DAYS 1-21
     Route: 048
     Dates: start: 20051010
  8. ETOPOSIDE [Suspect]
     Active Substance: ETOPOSIDE
     Indication: Chemotherapy
     Dosage: UNK (DOSE REDUCED) (CAPSULE)
     Route: 048
     Dates: start: 20061105
  9. TOPOTECAN [Suspect]
     Active Substance: TOPOTECAN HYDROCHLORIDE
     Indication: Metastases to bone
     Dosage: UNK
     Route: 065
     Dates: start: 2004, end: 2004
  10. TOPOTECAN [Suspect]
     Active Substance: TOPOTECAN HYDROCHLORIDE
     Indication: Neuroblastoma
  11. CYTOXAN [Suspect]
     Active Substance: CYCLOPHOSPHAMIDE
     Indication: Neuroblastoma recurrent
     Dosage: 75 MG/M2/DAY, UNK DAYS 22-41
     Route: 048
     Dates: start: 20051010
  12. CYTOXAN [Suspect]
     Active Substance: CYCLOPHOSPHAMIDE
     Indication: Metastases to bone
     Dosage: UNK (DOSE REDUCED)
     Route: 048
     Dates: start: 20060123, end: 20060216
  13. CYTOXAN [Suspect]
     Active Substance: CYCLOPHOSPHAMIDE
     Indication: Chemotherapy
     Dosage: UNK (DOSE REDUCED)
     Route: 048
     Dates: start: 20060216, end: 20060511
  14. ADRIAMYCIN [Suspect]
     Active Substance: DOXORUBICIN HYDROCHLORIDE
     Indication: Neuroblastoma
     Dosage: UNK
     Route: 065
  15. ADRIAMYCIN [Suspect]
     Active Substance: DOXORUBICIN HYDROCHLORIDE
     Indication: Metastases to bone
  16. IFOSFAMIDE [Suspect]
     Active Substance: IFOSFAMIDE
     Indication: Neuroblastoma
     Dosage: UNK
     Route: 065
  17. IFOSFAMIDE [Suspect]
     Active Substance: IFOSFAMIDE
     Indication: Metastases to bone
  18. ISOTRETINOIN [Suspect]
     Active Substance: ISOTRETINOIN
     Indication: Metastases to bone
     Dosage: UNK
     Route: 065
     Dates: start: 2004, end: 2005
  19. ISOTRETINOIN [Suspect]
     Active Substance: ISOTRETINOIN
     Indication: Neuroblastoma
  20. VINCRISTINE [Suspect]
     Active Substance: VINCRISTINE
     Indication: Metastases to bone
     Dosage: UNK
     Route: 065
  21. VINCRISTINE [Suspect]
     Active Substance: VINCRISTINE
     Indication: Neuroblastoma
  22. CISPLATIN [Suspect]
     Active Substance: CISPLATIN
     Indication: Metastases to bone
     Route: 065
  23. CISPLATIN [Suspect]
     Active Substance: CISPLATIN
     Indication: Neuroblastoma
  24. SULINDAC [Concomitant]
     Active Substance: SULINDAC
     Indication: Metastases to bone
     Dosage: 4 MILLIGRAM/KILOGRAM, QD (CONTINOUS)
     Route: 065
     Dates: start: 2005
  25. SULINDAC [Concomitant]
     Active Substance: SULINDAC
     Indication: Neuroblastoma recurrent
  26. CELEBREX [Concomitant]
     Active Substance: CELECOXIB
     Indication: Cancer pain
     Dosage: 500MG/M2/DAY
     Route: 048
     Dates: start: 20060914, end: 2006
  27. CELEBREX [Concomitant]
     Active Substance: CELECOXIB
     Dosage: 200 MILLIGRAM, TID
     Route: 048
     Dates: start: 2006, end: 20061106

REACTIONS (2)
  - Haematotoxicity [Recovered/Resolved]
  - Myelosuppression [Unknown]
